FAERS Safety Report 6716897-6 (Version None)
Quarter: 2010Q2

REPORT INFORMATION
  Report Type: 
  Country: None (occurrence: None)
  Receive Date: 20100504
  Receipt Date: 20100415
  Transmission Date: 20101027
  Serious: Yes (Hospitalization, Other)
  Sender: FDA-Public Use
  Company Number: 7001706

PATIENT
  Age: 11 Year
  Sex: Male

DRUGS (2)
  1. SAIZEN [Suspect]
     Indication: GROWTH HORMONE DEFICIENCY
     Dosage: 0.9 MG
     Dates: start: 20070828
  2. SYNTHROID [Concomitant]

REACTIONS (8)
  - BACTERIAL SEPSIS [None]
  - DEVICE RELATED INFECTION [None]
  - DIARRHOEA [None]
  - IMMUNE SYSTEM DISORDER [None]
  - INJECTION SITE PAIN [None]
  - MALABSORPTION [None]
  - SCRATCH [None]
  - SEPTIC SHOCK [None]
